FAERS Safety Report 20049959 (Version 2)
Quarter: 2021Q4

REPORT INFORMATION
  Report Type: Spontaneous
  Country: NO (occurrence: NO)
  Receive Date: 20211109
  Receipt Date: 20211123
  Transmission Date: 20220303
  Serious: Yes (Death)
  Sender: FDA-Public Use
  Company Number: None

PATIENT
  Age: 58 Year
  Sex: Male

DRUGS (6)
  1. KEYTRUDA [Suspect]
     Active Substance: PEMBROLIZUMAB
     Dosage: 200 MG, EVERY 3RD WEEK, L01XC18, CONCENTRATE FOR SOLUTION FOR INFUSION, SOLUBLE
     Route: 042
     Dates: start: 20210408, end: 20210906
  2. CARBOPLATIN [Concomitant]
     Active Substance: CARBOPLATIN
     Indication: Lung neoplasm malignant
     Dosage: 570 MILLIGRAM, Q3W, AUC5
     Route: 042
     Dates: start: 20210408, end: 20210610
  3. VITAMIN B12 [Concomitant]
     Active Substance: CYANOCOBALAMIN
     Indication: Chemotherapy side effect prophylaxis
     Dosage: 1 MG EVERY 9. WEEK AS PREMEDICATION BEFORE PEMETREXED TO AVOID SIDE EFFECTS, Q9W, B03BA01
     Route: 030
     Dates: start: 20210326
  4. DEXAMETHASONE [Concomitant]
     Active Substance: DEXAMETHASONE
     Indication: Chemotherapy side effect prophylaxis
     Dosage: 1 TABLET EACH MORNING AND EVENING FOR 3 DAYS WHEN GIVEN CHEMOTHERAPY. LAST GIVEN 05.-07/09/2021, H02
     Route: 048
     Dates: start: 20210407
  5. FOLIC ACID [Concomitant]
     Active Substance: FOLIC ACID
     Indication: Chemotherapy side effect prophylaxis
     Dosage: 1 TABLET DAILY AS PREMEDICATION BEFORE TREATMENT WITH PEMETREXED TO AVOID SIDE EFFECTS.
     Route: 048
     Dates: start: 20210326
  6. PEMETREXED [Concomitant]
     Active Substance: PEMETREXED
     Indication: Lung neoplasm malignant
     Dosage: 500 MG/M2. THE LAST DOSE WAS GIVEN 06/09/21, L01BA04
     Route: 042
     Dates: start: 20210408

REACTIONS (6)
  - Cardiogenic shock [Fatal]
  - Cardiac failure [Fatal]
  - Myocarditis [Fatal]
  - Ventricular tachycardia [Fatal]
  - Thyroiditis [Fatal]
  - Syncope [Fatal]

NARRATIVE: CASE EVENT DATE: 20210701
